FAERS Safety Report 16086398 (Version 4)
Quarter: 2020Q4

REPORT INFORMATION
  Report Type: Spontaneous
  Country: US (occurrence: US)
  Receive Date: 20190318
  Receipt Date: 20201228
  Transmission Date: 20210113
  Serious: Yes (Hospitalization, Other)
  Sender: FDA-Public Use
  Company Number: US-VIFOR (INTERNATIONAL) INC.-VIT-2019-02391

PATIENT
  Age: 40 Year
  Sex: Male

DRUGS (8)
  1. CARVEDILOL. [Concomitant]
     Active Substance: CARVEDILOL
  2. LOSARTAN POTASSIUM. [Concomitant]
     Active Substance: LOSARTAN POTASSIUM
  3. NIFEDIPINE. [Concomitant]
     Active Substance: NIFEDIPINE
  4. VELTASSA [Suspect]
     Active Substance: PATIROMER
     Route: 048
     Dates: start: 2019
  5. ATORVASTATIN CALCIUM. [Concomitant]
     Active Substance: ATORVASTATIN CALCIUM
  6. VELTASSA [Suspect]
     Active Substance: PATIROMER
     Route: 048
  7. GLIPIZIDE. [Concomitant]
     Active Substance: GLIPIZIDE
  8. VELTASSA [Suspect]
     Active Substance: PATIROMER
     Indication: HYPERKALAEMIA
     Route: 048
     Dates: start: 20190221

REACTIONS (7)
  - Coronavirus infection [Unknown]
  - Cardiac arrest [Unknown]
  - Hospitalisation [Unknown]
  - Pharyngeal swelling [Unknown]
  - Choking [Not Recovered/Not Resolved]
  - Constipation [Not Recovered/Not Resolved]
  - Dyspnoea [Unknown]

NARRATIVE: CASE EVENT DATE: 2019
